FAERS Safety Report 11517495 (Version 1)
Quarter: 2015Q3

REPORT INFORMATION
  Report Type: Spontaneous
  Country: JP (occurrence: JP)
  Receive Date: 20150917
  Receipt Date: 20150917
  Transmission Date: 20151125
  Serious: Yes (Other)
  Sender: FDA-Public Use
  Company Number: JP-GLAXOSMITHKLINE-JP2014JPN028128

PATIENT
  Age: 89 Year
  Sex: Female
  Weight: 49 kg

DRUGS (2)
  1. ZOVIRAX [Suspect]
     Active Substance: ACYCLOVIR
     Dosage: 250 MG, BID
     Route: 041
     Dates: start: 201411, end: 20141125
  2. ZOVIRAX [Suspect]
     Active Substance: ACYCLOVIR
     Indication: HERPES ZOSTER
     Dosage: 250 MG, BID
     Route: 041
     Dates: start: 20141118, end: 201411

REACTIONS (3)
  - Depressed level of consciousness [Unknown]
  - Feeding disorder [Unknown]
  - Renal impairment [Unknown]

NARRATIVE: CASE EVENT DATE: 201411
